FAERS Safety Report 13332821 (Version 1)
Quarter: 2017Q1

REPORT INFORMATION
  Report Type: Report from Study
  Country: AU (occurrence: AU)
  Receive Date: 20170313
  Receipt Date: 20170313
  Transmission Date: 20170428
  Serious: Yes (Other)
  Sender: FDA-Public Use
  Company Number: AU-REGENERON PHARMACEUTICALS, INC.-2017-12947

PATIENT

DRUGS (2)
  1. EYLEA [Suspect]
     Active Substance: AFLIBERCEPT
     Indication: RETINAL VEIN OCCLUSION
     Dosage: UNK, Q8WK (LAST INJECTION WAS GIVEN ON 23-FEB-2017)
     Route: 031
     Dates: start: 20150731
  2. EYLEA [Suspect]
     Active Substance: AFLIBERCEPT
     Dosage: UNK, Q8WK (LAST INJECTION WAS GIVEN ON 23-FEB-2017)
     Route: 031
     Dates: start: 20170223, end: 20170223

REACTIONS (1)
  - Exophthalmos [Unknown]
